FAERS Safety Report 10260844 (Version 1)
Quarter: 2014Q2

REPORT INFORMATION
  Report Type: Spontaneous
  Country: GB (occurrence: None)
  Receive Date: 20140623
  Receipt Date: 20140623
  Transmission Date: 20141212
  Serious: Yes (Other)
  Sender: FDA-Public Use
  Company Number: AUR-APL-2014-06401

PATIENT
  Age: 35 Year
  Sex: Female

DRUGS (3)
  1. GABAPENTIN 300MG (GABAPENTIN) UNKNOWN, 300MG [Suspect]
     Indication: HEADACHE
     Route: 048
     Dates: start: 20140429, end: 20140429
  2. GABAPENTIN 300MG (GABAPENTIN) UNKNOWN, 300MG [Suspect]
     Indication: NECK PAIN
     Route: 048
     Dates: start: 20140429, end: 20140429
  3. TOPIRAMATE (TOPIRAMATE) [Concomitant]

REACTIONS (3)
  - Anaphylactic reaction [None]
  - Dyspnoea [None]
  - Pharyngeal oedema [None]
